FAERS Safety Report 6425572-7 (Version None)
Quarter: 2009Q4

REPORT INFORMATION
  Report Type: 
  Country: None (occurrence: None)
  Receive Date: 20091103
  Receipt Date: 20091022
  Transmission Date: 20100525
  Serious: Yes (Hospitalization, Other)
  Sender: FDA-Public Use
  Company Number: US-ELI_LILLY_AND_COMPANY-US200908002441

PATIENT
  Sex: Male

DRUGS (11)
  1. ZYPREXA [Suspect]
     Indication: SCHIZOPHRENIA
     Dosage: 20 MG, 2/D
     Route: 048
     Dates: start: 20080501, end: 20090301
  2. NICOTINE [Concomitant]
     Dosage: 1 D/F, UNK
  3. ALCOHOL [Concomitant]
     Dosage: 1 D/F, UNK
  4. COGENTIN [Concomitant]
     Dosage: 1 D/F, UNK
  5. RISPERDAL CONSTA [Concomitant]
     Dosage: 1 D/F, UNK
  6. LITHIUM [Concomitant]
     Dosage: 1 D/F, UNK
  7. STRATTERA [Concomitant]
     Dosage: 1 D/F, UNK
  8. SEROQUEL [Concomitant]
     Dosage: 1 D/F, UNK
  9. COMPAZINE [Concomitant]
     Dosage: 1 D/F, UNK
  10. NASONEX [Concomitant]
     Dosage: 1 D/F, UNK
  11. PREVACID [Concomitant]
     Dosage: 1 D/F, UNK

REACTIONS (3)
  - DIABETES MELLITUS [None]
  - HALLUCINATION, AUDITORY [None]
  - OVERDOSE [None]
